FAERS Safety Report 6471817-7 (Version None)
Quarter: 2009Q4

REPORT INFORMATION
  Report Type: 
  Country: None (occurrence: None)
  Receive Date: 20091203
  Receipt Date: 20090529
  Transmission Date: 20100525
  Serious: Yes (Hospitalization)
  Sender: FDA-Public Use
  Company Number: US-ELI_LILLY_AND_COMPANY-US200803002946

PATIENT
  Sex: Female
  Weight: 136.5 kg

DRUGS (1)
  1. ZYPREXA [Suspect]
     Dosage: UNK, UNK
     Dates: start: 20030201

REACTIONS (6)
  - CEREBROVASCULAR ACCIDENT [None]
  - DRUG DEPENDENCE [None]
  - MONOPLEGIA [None]
  - NEUROPATHY PERIPHERAL [None]
  - THROMBOSIS [None]
  - TYPE 1 DIABETES MELLITUS [None]
